FAERS Safety Report 14807757 (Version 1)
Quarter: 2018Q2

REPORT INFORMATION
  Report Type: Spontaneous
  Country: PL (occurrence: PL)
  Receive Date: 20180425
  Receipt Date: 20180425
  Transmission Date: 20180711
  Serious: Yes (Other)
  Sender: FDA-Public Use
  Company Number: PL-MYLANLABS-2018M1026219

PATIENT
  Sex: Male

DRUGS (1)
  1. ALPRAGEN [Suspect]
     Active Substance: ALPRAZOLAM
     Indication: INSOMNIA
     Dosage: UNK

REACTIONS (3)
  - Off label use [Unknown]
  - Skin burning sensation [Unknown]
  - Oral disorder [Unknown]
